FAERS Safety Report 9845358 (Version 1)
Quarter: 2014Q1

REPORT INFORMATION
  Report Type: Spontaneous
  Country: US (occurrence: None)
  Receive Date: 20140122
  Receipt Date: 20140122
  Transmission Date: 20141002
  Serious: Yes (Hospitalization)
  Sender: FDA-Public Use
  Company Number: 2014-US-000294

PATIENT
  Age: 19 Year
  Sex: Female
  Weight: 47.6 kg

DRUGS (6)
  1. XYREM (SODIUM OXYBATE) ORAL SOLUTION, 500MG/ML [Suspect]
     Indication: NARCOLEPSY
     Route: 048
     Dates: start: 201203
  2. XYREM (SODIUM OXYBATE) ORAL SOLUTION, 500MG/ML [Suspect]
     Route: 048
     Dates: start: 201203
  3. FLONASE (FLUTICASONE PROPIONATE) [Concomitant]
  4. ZYRTEC (CETIRIZINE HYDROCHLORIDE) [Concomitant]
  5. LOESTRIN (ETHINYLESTRADIOL, NORETHISTERONE ACETATE) [Concomitant]
  6. DEXTROAMPHETAMINE PHOSPHATE (DEXTROAMPHETAMINE PHOSPHATE) [Concomitant]

REACTIONS (6)
  - Concussion [None]
  - Upper limb fracture [None]
  - Cataplexy [None]
  - Anxiety [None]
  - Treatment noncompliance [None]
  - Economic problem [None]
